FAERS Safety Report 5196904-5 (Version None)
Quarter: 2007Q1

REPORT INFORMATION
  Report Type: 
  Country: None (occurrence: None)
  Receive Date: 20070103
  Receipt Date: 20061222
  Transmission Date: 20070707
  Serious: Yes (Other)
  Sender: FDA-Public Use
  Company Number: PHRM2006FR03406

PATIENT
  Age: 30 Year
  Sex: Female

DRUGS (1)
  1. NEORAL [Suspect]
     Indication: PSORIASIS
     Route: 048

REACTIONS (4)
  - ANAPHYLACTOID REACTION [None]
  - BURNING SENSATION MUCOSAL [None]
  - MALAISE [None]
  - PERIPHERAL COLDNESS [None]
